FAERS Safety Report 21850936 (Version 2)
Quarter: 2023Q1

REPORT INFORMATION
  Report Type: Report from Study
  Country: US (occurrence: US)
  Receive Date: 20230111
  Receipt Date: 20230323
  Transmission Date: 20230418
  Serious: No
  Sender: FDA-Public Use
  Company Number: US-ABBVIE-4232310

PATIENT
  Age: 33 Year
  Sex: Female
  Weight: 77.11 kg

DRUGS (2)
  1. RINVOQ [Suspect]
     Active Substance: UPADACITINIB
     Indication: Rheumatoid arthritis
     Route: 048
  2. AZITHROMYCIN [Concomitant]
     Active Substance: AZITHROMYCIN
     Indication: Upper respiratory tract infection

REACTIONS (5)
  - Upper respiratory tract infection [Recovered/Resolved]
  - Bronchitis [Unknown]
  - Respiratory tract infection [Recovering/Resolving]
  - Sinusitis [Unknown]
  - Impetigo [Unknown]

NARRATIVE: CASE EVENT DATE: 20220101
